FAERS Safety Report 7667274-5 (Version None)
Quarter: 2011Q3

REPORT INFORMATION
  Report Type: 
  Country: None (occurrence: None)
  Receive Date: 20110806
  Receipt Date: 20110407
  Transmission Date: 20111222
  Serious: No
  Sender: FDA-Public Use
  Company Number: US-ABBOTT-11P-163-0717083-00

PATIENT
  Sex: Male
  Weight: 108.96 kg

DRUGS (6)
  1. ASCORBIC ACID [Concomitant]
     Indication: PRODUCT USED FOR UNKNOWN INDICATION
  2. ATENOLOL [Concomitant]
     Indication: PRODUCT USED FOR UNKNOWN INDICATION
  3. COQ10 [Concomitant]
     Indication: PRODUCT USED FOR UNKNOWN INDICATION
  4. NIASPAN [Suspect]
     Indication: HIGH DENSITY LIPOPROTEIN DECREASED
     Dates: start: 20100101
  5. STATIN [Concomitant]
     Indication: PRODUCT USED FOR UNKNOWN INDICATION
  6. FISH OIL [Concomitant]
     Indication: PRODUCT USED FOR UNKNOWN INDICATION

REACTIONS (6)
  - RASH [None]
  - GENERALISED ERYTHEMA [None]
  - RASH PAPULAR [None]
  - URTICARIA [None]
  - FEELING HOT [None]
  - DRUG EFFECT DECREASED [None]
